FAERS Safety Report 12297851 (Version 3)
Quarter: 2016Q3

REPORT INFORMATION
  Report Type: Spontaneous
  Country: NL (occurrence: NL)
  Receive Date: 20160422
  Receipt Date: 20160706
  Transmission Date: 20161109
  Serious: Yes (Other)
  Sender: FDA-Public Use
  Company Number: NL-PFIZER INC-2015299986

PATIENT
  Age: 40 Year
  Sex: Male

DRUGS (8)
  1. CABERGOLINE SANDOZ [Concomitant]
     Active Substance: CABERGOLINE
     Dosage: 1 MG (2 TABLETS OF 0.5 MG), 5X/WEEK
  2. SOMAVERT [Suspect]
     Active Substance: PEGVISOMANT
     Dosage: 60 MG, WEEKLY (1X/WEEK)
     Dates: start: 20121026
  3. FLIXONASE [Concomitant]
     Active Substance: FLUTICASONE PROPIONATE
     Dosage: 0.4 MG, 2X/DAY (IN BOTH NOSE NOSTRILS)
  4. SOMAVERT [Suspect]
     Active Substance: PEGVISOMANT
     Indication: ACROMEGALY
     Dosage: 40 MG, WEEKLY (1X/WEEK)
     Dates: start: 20121001
  5. SOMAVERT [Suspect]
     Active Substance: PEGVISOMANT
     Dosage: 60 MG, WEEKLY (1X/WEEK)
     Dates: start: 20121123
  6. SOMAVERT [Suspect]
     Active Substance: PEGVISOMANT
     Dosage: 20 MG, 3X/WEEK
  7. SOMAVERT [Suspect]
     Active Substance: PEGVISOMANT
     Dosage: 80 MG, WEEKLY (1X/WEEK)
     Route: 058
     Dates: start: 20160414, end: 20160701
  8. SOMAVERT [Suspect]
     Active Substance: PEGVISOMANT
     Dosage: 100 MG, 1X/WEEK
     Dates: start: 20160702

REACTIONS (6)
  - Drug ineffective [Unknown]
  - Muscle spasms [Not Recovered/Not Resolved]
  - Haematochezia [Not Recovered/Not Resolved]
  - Abdominal pain [Not Recovered/Not Resolved]
  - Fatigue [Not Recovered/Not Resolved]
  - Off label use [Unknown]

NARRATIVE: CASE EVENT DATE: 20121001
